FAERS Safety Report 13928905 (Version 1)
Quarter: 2017Q3

REPORT INFORMATION
  Report Type: Spontaneous
  Country: US (occurrence: None)
  Receive Date: 20170901
  Receipt Date: 20170901
  Transmission Date: 20171127
  Serious: Yes (Hospitalization)
  Sender: FDA-Public Use
  Company Number: None

PATIENT
  Age: 52 Year
  Sex: Female

DRUGS (14)
  1. SOMA [Concomitant]
     Active Substance: CARISOPRODOL
  2. PREMARIN [Concomitant]
     Active Substance: ESTROGENS, CONJUGATED
  3. GABAPENTIN. [Concomitant]
     Active Substance: GABAPENTIN
  4. FOLIC ACID. [Concomitant]
     Active Substance: FOLIC ACID
  5. BYDUREON [Concomitant]
     Active Substance: EXENATIDE
  6. LASIX [Concomitant]
     Active Substance: FUROSEMIDE
  7. METHOTREXATE. [Concomitant]
     Active Substance: METHOTREXATE
  8. PROMETHAZINE [Concomitant]
     Active Substance: PROMETHAZINE\PROMETHAZINE HYDROCHLORIDE
  9. NOVOLOG [Concomitant]
     Active Substance: INSULIN ASPART
  10. NORCO [Concomitant]
     Active Substance: ACETAMINOPHEN\HYDROCODONE BITARTRATE
  11. METOLAZONE. [Concomitant]
     Active Substance: METOLAZONE
  12. COSENTYX [Suspect]
     Active Substance: SECUKINUMAB
     Indication: PSORIASIS
     Dosage: FREQUENCY - Q 4 WEEKS
     Route: 058
  13. POTASSIUM [Concomitant]
     Active Substance: POTASSIUM
  14. FUROSEMIDE. [Concomitant]
     Active Substance: FUROSEMIDE

REACTIONS (1)
  - Asthma [None]

NARRATIVE: CASE EVENT DATE: 201708
